FAERS Safety Report 14379056 (Version 26)
Quarter: 2024Q4

REPORT INFORMATION
  Report Type: Report from Study
  Country: DE (occurrence: DE)
  Receive Date: 20180112
  Receipt Date: 20241212
  Transmission Date: 20250115
  Serious: Yes (Life-Threatening, Hospitalization, Other)
  Sender: BRISTOL-MYERS SQUIBB COMPANY
  Company Number: DE-BRISTOL-MYERS SQUIBB COMPANY-BMS-2017-066408

PATIENT
  Age: 66 Year
  Sex: Male

DRUGS (34)
  1. OPDIVO [Suspect]
     Active Substance: NIVOLUMAB
     Indication: Malignant melanoma
     Dosage: 295.5 MILLIGRAM, Q2WK
     Route: 042
     Dates: start: 20170707
  2. OPDIVO [Suspect]
     Active Substance: NIVOLUMAB
     Dosage: 297 MILLIGRAM, Q2WK
     Route: 042
     Dates: start: 20170721, end: 20170915
  3. OPDIVO [Suspect]
     Active Substance: NIVOLUMAB
     Dosage: 299.7 MILLIGRAM, Q2WK
     Route: 042
     Dates: start: 20170929
  4. OPDIVO [Suspect]
     Active Substance: NIVOLUMAB
     Dosage: 303.3 MILLIGRAM, Q2WK
     Route: 042
     Dates: start: 20171013
  5. OPDIVO [Suspect]
     Active Substance: NIVOLUMAB
     Dosage: 300 MILLIGRAM, Q2WK
     Route: 042
     Dates: start: 20171027
  6. OPDIVO [Suspect]
     Active Substance: NIVOLUMAB
     Dosage: 303 MILLIGRAM, Q2WK
     Route: 042
     Dates: start: 20171110
  7. OPDIVO [Suspect]
     Active Substance: NIVOLUMAB
     Dosage: 300 MILLIGRAM, Q2WK
     Route: 042
     Dates: start: 20171124
  8. OPDIVO [Suspect]
     Active Substance: NIVOLUMAB
     Dosage: 298.2 MILLIGRAM, Q2WK
     Route: 042
     Dates: start: 20171208
  9. OPDIVO [Suspect]
     Active Substance: NIVOLUMAB
     Dosage: 272.1 MILLIGRAM, Q2WK
     Route: 042
     Dates: start: 20180112
  10. OPDIVO [Suspect]
     Active Substance: NIVOLUMAB
     Dosage: 275.1 MILLIGRAM, Q2WK
     Route: 042
     Dates: start: 20180126
  11. OPDIVO [Suspect]
     Active Substance: NIVOLUMAB
     Dosage: UNK
     Route: 042
     Dates: start: 20180223
  12. OPDIVO [Suspect]
     Active Substance: NIVOLUMAB
     Dosage: 240 MILLIGRAM, Q2WK
     Route: 042
     Dates: start: 20180608
  13. OPDIVO [Suspect]
     Active Substance: NIVOLUMAB
     Dosage: 296.10 MILLIGRAM, Q2WK
     Route: 042
     Dates: start: 20180406
  14. OPDIVO [Suspect]
     Active Substance: NIVOLUMAB
     Dosage: 296.10 MILLIGRAM, Q2WK
     Route: 042
     Dates: start: 20200420
  15. OPDIVO [Suspect]
     Active Substance: NIVOLUMAB
     Dosage: 298.50 MILLIGRAM, Q2WK
     Route: 042
     Dates: start: 20180504
  16. OPDIVO [Suspect]
     Active Substance: NIVOLUMAB
     Dosage: 240.00 MILLIGRAM, Q2WK
     Route: 042
     Dates: start: 20180608
  17. OPDIVO [Suspect]
     Active Substance: NIVOLUMAB
     Dosage: 480 MILLIGRAM, Q4WK
     Route: 042
     Dates: start: 20191108
  18. OPDIVO [Suspect]
     Active Substance: NIVOLUMAB
     Dosage: 287.7  MILLIGRAM, Q2WK
     Route: 042
     Dates: start: 20180223
  19. OPDIVO [Suspect]
     Active Substance: NIVOLUMAB
     Dosage: 480 MILLIGRAM, Q4WK
     Route: 042
     Dates: start: 20170707, end: 20191108
  20. PREDNICARBATE [Concomitant]
     Active Substance: PREDNICARBATE
     Indication: Product used for unknown indication
  21. METHYLPREDNISOLONE ACEPONATE [Concomitant]
     Active Substance: METHYLPREDNISOLONE ACEPONATE
     Indication: Product used for unknown indication
     Dosage: 40 MILLIGRAM
     Route: 048
     Dates: start: 20180704, end: 20180705
  22. METHYLPREDNISOLONE ACEPONATE [Concomitant]
     Active Substance: METHYLPREDNISOLONE ACEPONATE
     Dosage: 96 MILLIGRAM, QD
     Route: 042
     Dates: start: 20180622, end: 20180703
  23. PANTOPRAZOLE SODIUM [Concomitant]
     Active Substance: PANTOPRAZOLE SODIUM
     Indication: Product used for unknown indication
     Dosage: 20 MILLIGRAM, QD
     Route: 048
     Dates: start: 20180817, end: 20190404
  24. HYDROCORTISONE [Concomitant]
     Active Substance: HYDROCORTISONE
     Indication: Product used for unknown indication
     Dosage: 15 MILLIGRAM
     Route: 048
     Dates: start: 20180803
  25. CETIRIZINE HYDROCHLORIDE [Concomitant]
     Active Substance: CETIRIZINE HYDROCHLORIDE
     Indication: Product used for unknown indication
  26. METHIMAZOLE [Concomitant]
     Active Substance: METHIMAZOLE
     Indication: Product used for unknown indication
  27. LEVOTHYROXINE SODIUM [Concomitant]
     Active Substance: LEVOTHYROXINE SODIUM
     Indication: Product used for unknown indication
  28. SODIUM CHLORIDE [Concomitant]
     Active Substance: SODIUM CHLORIDE
     Indication: Product used for unknown indication
  29. SODIUM CHLORIDE [Concomitant]
     Active Substance: SODIUM CHLORIDE
     Indication: Product used for unknown indication
     Dosage: 500 MILLILITER, QD
     Route: 042
     Dates: start: 20180522, end: 20180529
  30. SODIUM CHLORIDE [Concomitant]
     Active Substance: SODIUM CHLORIDE
     Dosage: 1000 MILLILITER, QD
     Route: 042
     Dates: start: 20180528, end: 20180607
  31. KETOCONAZOLE [Concomitant]
     Active Substance: KETOCONAZOLE
     Indication: Product used for unknown indication
  32. AMPICILLIN NATRIUM [Concomitant]
     Indication: Product used for unknown indication
  33. POTASSIUM CHLORIDE [Concomitant]
     Active Substance: POTASSIUM CHLORIDE
     Indication: Product used for unknown indication
  34. BETAMETHASONE VALERATE [Concomitant]
     Active Substance: BETAMETHASONE VALERATE
     Indication: Product used for unknown indication
     Dosage: UNK

REACTIONS (22)
  - Hyponatraemia [Recovered/Resolved]
  - Adrenal insufficiency [Recovered/Resolved]
  - Adrenalitis [Recovered/Resolved]
  - Upper respiratory tract infection [Recovered/Resolved]
  - Chills [Recovered/Resolved]
  - Peripheral coldness [Recovered/Resolved]
  - Erythema [Recovered/Resolved]
  - Pruritus [Recovered/Resolved with Sequelae]
  - Radiation skin injury [Recovered/Resolved]
  - Muscle spasms [Recovered/Resolved]
  - Dysphonia [Recovered/Resolved]
  - Fatigue [Recovered/Resolved]
  - Seborrhoeic dermatitis [Recovered/Resolved]
  - Thyroiditis [Recovered/Resolved]
  - Pelvic pain [Recovered/Resolved]
  - Skin exfoliation [Recovered/Resolved]
  - Lentigo [Recovered/Resolved]
  - Actinic keratosis [Recovered/Resolved]
  - Prescribed overdose [Unknown]
  - Diarrhoea [Recovered/Resolved]
  - Dizziness [Unknown]
  - Dehydration [Unknown]

NARRATIVE: CASE EVENT DATE: 20170710
